FAERS Safety Report 9277125 (Version 2)
Quarter: 2013Q2

REPORT INFORMATION
  Report Type: Spontaneous
  Country: US (occurrence: US)
  Receive Date: 20130507
  Receipt Date: 20130531
  Transmission Date: 20140414
  Serious: Yes (Death)
  Sender: FDA-Public Use
  Company Number: US-ROCHE-1220263

PATIENT
  Age: 68 Year
  Sex: Female

DRUGS (4)
  1. HERCEPTIN [Suspect]
     Indication: PRODUCT USED FOR UNKNOWN INDICATION
     Route: 065
     Dates: start: 20121227
  2. ARIXTRA [Suspect]
     Indication: PULMONARY EMBOLISM
     Route: 058
     Dates: start: 20120523, end: 20130108
  3. NAVELBINE [Suspect]
     Indication: BREAST CANCER
     Route: 065
     Dates: start: 20121227
  4. DURATUSS [Concomitant]

REACTIONS (2)
  - Breast cancer metastatic [Fatal]
  - Neutropenia [Fatal]
